FAERS Safety Report 23669634 (Version 1)
Quarter: 2024Q1

REPORT INFORMATION
  Report Type: Spontaneous
  Country: JP (occurrence: JP)
  Receive Date: 20240325
  Receipt Date: 20240325
  Transmission Date: 20240409
  Serious: Yes (Other)
  Sender: FDA-Public Use
  Company Number: JP-shionogiph-202402300_OXJ_P_1

PATIENT
  Age: 3 Decade
  Sex: Female

DRUGS (1)
  1. OXYCODONE [Suspect]
     Active Substance: OXYCODONE\OXYCODONE HYDROCHLORIDE
     Indication: Abdominal pain lower
     Dosage: 70.4 MILLIGRAM, DAILY
     Route: 042

REACTIONS (1)
  - Intestinal obstruction [Recovering/Resolving]
